FAERS Safety Report 4725065-9 (Version None)
Quarter: 2005Q3

REPORT INFORMATION
  Report Type: 
  Country: None (occurrence: None)
  Receive Date: 20050721
  Receipt Date: 20050708
  Transmission Date: 20060218
  Serious: Yes (Hospitalization, Disabling, Other)
  Sender: FDA-Public Use
  Company Number: 2005085099

PATIENT
  Sex: Male

DRUGS (3)
  1. GEODON [Suspect]
     Indication: SCHIZOAFFECTIVE DISORDER
     Dosage: 80 MG (40 MG, 2 IN 1 D), ORAL
     Route: 048
  2. DEPAKOTE [Concomitant]
  3. TENEX [Concomitant]

REACTIONS (11)
  - ABNORMAL BEHAVIOUR [None]
  - AGGRESSION [None]
  - CONVULSION [None]
  - DROOLING [None]
  - DRUG INEFFECTIVE [None]
  - EXCESSIVE MASTURBATION [None]
  - FALL [None]
  - LOSS OF CONSCIOUSNESS [None]
  - MUSCLE RIGIDITY [None]
  - PARAESTHESIA [None]
  - SPEECH DISORDER [None]
